FAERS Safety Report 20193783 (Version 1)
Quarter: 2021Q4

REPORT INFORMATION
  Report Type: Spontaneous
  Country: US (occurrence: US)
  Receive Date: 20211216
  Receipt Date: 20211216
  Transmission Date: 20220303
  Serious: No
  Sender: FDA-Public Use
  Company Number: US-GSKCCFUS-Case-01237558_AE-72541

PATIENT
  Sex: Female

DRUGS (1)
  1. LAMICTAL [Suspect]
     Active Substance: LAMOTRIGINE
     Indication: Seizure
     Dosage: TAKES 1 IN THE MORNING (200 MG) AND 1.5 IN THE EVENING (300 MG)
     Route: 048
     Dates: start: 2013

REACTIONS (3)
  - Urticaria [Not Recovered/Not Resolved]
  - Stress [Unknown]
  - Wrong technique in product usage process [Unknown]
